FAERS Safety Report 24861595 (Version 1)
Quarter: 2025Q1

REPORT INFORMATION
  Report Type: Report from Study
  Country: US (occurrence: US)
  Receive Date: 20250120
  Receipt Date: 20250120
  Transmission Date: 20250409
  Serious: No
  Sender: BIOVITRUM
  Company Number: US-BIOVITRUM-2024-US-015234

PATIENT
  Age: 24 Year
  Sex: Female

DRUGS (2)
  1. KINERET [Suspect]
     Active Substance: ANAKINRA
     Indication: Rheumatoid arthritis
     Route: 058
     Dates: start: 20241022
  2. KINERET [Suspect]
     Active Substance: ANAKINRA
     Indication: Connective tissue disorder

REACTIONS (3)
  - Injection site rash [Unknown]
  - Migraine [Unknown]
  - Drug ineffective [Unknown]
